FAERS Safety Report 25851644 (Version 1)
Quarter: 2025Q3

REPORT INFORMATION
  Report Type: Spontaneous
  Country: EU (occurrence: EU)
  Receive Date: 20250926
  Receipt Date: 20250926
  Transmission Date: 20251020
  Serious: Yes (Other)
  Sender: RANBAXY
  Company Number: EU-SUN PHARMACEUTICAL INDUSTRIES LTD-2025RR-528684

PATIENT
  Age: 7 Year
  Sex: Female

DRUGS (6)
  1. LEVETIRACETAM [Suspect]
     Active Substance: LEVETIRACETAM
     Indication: Movement disorder
     Route: 065
  2. LEVETIRACETAM [Suspect]
     Active Substance: LEVETIRACETAM
     Indication: Paroxysmal nonkinesigenic dyskinesia
  3. LEVETIRACETAM [Suspect]
     Active Substance: LEVETIRACETAM
     Indication: Attention deficit hyperactivity disorder
  4. LISDEXAMFETAMINE [Suspect]
     Active Substance: LISDEXAMFETAMINE
     Indication: Paroxysmal nonkinesigenic dyskinesia
     Dosage: 0.5 MILLIGRAM/KILOGRAM, DAILY
     Route: 065
  5. LISDEXAMFETAMINE [Suspect]
     Active Substance: LISDEXAMFETAMINE
     Indication: Movement disorder
  6. LISDEXAMFETAMINE [Suspect]
     Active Substance: LISDEXAMFETAMINE
     Indication: Attention deficit hyperactivity disorder

REACTIONS (5)
  - Drug ineffective [Unknown]
  - Weight increased [Unknown]
  - Off label use [Unknown]
  - Therapeutic response unexpected [Unknown]
  - Sleep disorder [Unknown]
